FAERS Safety Report 5694565-X (Version None)
Quarter: 2008Q2

REPORT INFORMATION
  Report Type: 
  Country: None (occurrence: None)
  Receive Date: 20080404
  Receipt Date: 20080326
  Transmission Date: 20081010
  Serious: Yes (Life-Threatening, Hospitalization)
  Sender: FDA-Public Use
  Company Number: FR-AVENTIS-200811107FR

PATIENT
  Age: 37 Year
  Sex: Female

DRUGS (12)
  1. AMARYL [Suspect]
     Indication: DIABETES MELLITUS
     Route: 048
     Dates: start: 20040101
  2. MEDIATOR [Suspect]
     Indication: DIABETES MELLITUS
     Route: 048
     Dates: start: 20020101, end: 20021231
  3. GLUCOPHAGE [Suspect]
     Indication: DIABETES MELLITUS
     Route: 048
     Dates: start: 20040101
  4. PIPORTIL                           /00337501/ [Concomitant]
  5. PROZAC [Concomitant]
  6. TRIMEPRAZINE TAB [Concomitant]
  7. SERESTA [Concomitant]
  8. LYSANXIA [Concomitant]
  9. HALDOL [Concomitant]
  10. ZOLPIDEM [Concomitant]
  11. ABILIFY [Concomitant]
  12. DEPAKOTE [Concomitant]

REACTIONS (3)
  - INTERSTITIAL LUNG DISEASE [None]
  - PERICARDITIS [None]
  - PULMONARY HYPERTENSION [None]
